FAERS Safety Report 4489081-7 (Version None)
Quarter: 2004Q4

REPORT INFORMATION
  Report Type: 
  Country: None (occurrence: None)
  Receive Date: 20041028
  Receipt Date: 20041026
  Transmission Date: 20050328
  Serious: Yes (Other)
  Sender: FDA-Public Use
  Company Number: 003043

PATIENT
  Sex: Female

DRUGS (2)
  1. MEDROXYPROGESTERONE ACETATE [Suspect]
     Dates: start: 20020101, end: 20020101
  2. ESTRADIOL [Suspect]
     Dates: start: 20020101, end: 20030101

REACTIONS (1)
  - BREAST CANCER FEMALE [None]
